FAERS Safety Report 20302867 (Version 1)
Quarter: 2022Q1

REPORT INFORMATION
  Report Type: Spontaneous
  Country: SE (occurrence: SE)
  Receive Date: 20220106
  Receipt Date: 20220106
  Transmission Date: 20220423
  Serious: Yes (Hospitalization, Other)
  Sender: FDA-Public Use
  Company Number: SE-EMA-DD-20211215-bhushan_a-191729

PATIENT
  Age: 46 Year
  Sex: Male

DRUGS (13)
  1. LEVOFLOXACIN [Suspect]
     Active Substance: LEVOFLOXACIN
     Indication: Product used for unknown indication
     Dosage: 1000 MILLIGRAM DAILY;
     Route: 042
  2. TIVICAY [Suspect]
     Active Substance: DOLUTEGRAVIR SODIUM
     Indication: HIV infection
     Dosage: 100 MILLIGRAM DAILY; 50 MG, BID,
     Route: 042
     Dates: start: 20210112
  3. TIVICAY [Suspect]
     Active Substance: DOLUTEGRAVIR SODIUM
     Dosage: 50 MILLIGRAM DAILY;  EVENING
     Route: 042
     Dates: start: 20210112
  4. TIVICAY [Suspect]
     Active Substance: DOLUTEGRAVIR SODIUM
     Dosage: UNK
     Route: 042
  5. BETAPRED [Suspect]
     Active Substance: BETAMETHASONE SODIUM PHOSPHATE
     Indication: Product used for unknown indication
     Dosage: 12 MILLIGRAM DAILY; 6 MG, BID,
     Route: 042
  6. TRIUMEQ [Suspect]
     Active Substance: ABACAVIR SULFATE\DOLUTEGRAVIR SODIUM\LAMIVUDINE
     Indication: HIV infection
     Dosage: 1 DOSAGE FORMS DAILY;
     Route: 042
     Dates: start: 20210115
  7. TRIUMEQ [Suspect]
     Active Substance: ABACAVIR SULFATE\DOLUTEGRAVIR SODIUM\LAMIVUDINE
     Dosage: UNK
     Route: 042
     Dates: start: 2016
  8. RIFAMPIN [Suspect]
     Active Substance: RIFAMPIN
     Indication: Tuberculosis
     Dosage: 900 MILLIGRAM DAILY;
     Route: 042
  9. ZIAGEN [Suspect]
     Active Substance: ABACAVIR SULFATE
     Indication: HIV infection
     Dosage: 600 MILLIGRAM DAILY; 300 MG, BID
  10. SOLU-MEDROL [Suspect]
     Active Substance: METHYLPREDNISOLONE SODIUM SUCCINATE
     Indication: Product used for unknown indication
     Dosage: 1 G 2 DOSES
  11. EPIVIR [Suspect]
     Active Substance: LAMIVUDINE
     Indication: HIV infection
     Dosage: 300 MILLIGRAM DAILY; 150 MG, BID,
     Route: 042
  12. ISONIAZID [Suspect]
     Active Substance: ISONIAZID
     Indication: Product used for unknown indication
     Dosage: 300 MILLIGRAM DAILY;
     Route: 042
  13. PYRAZINAMIDE [Suspect]
     Active Substance: PYRAZINAMIDE
     Indication: Product used for unknown indication
     Dosage: 2000 MILLIGRAM DAILY; 500 MG, QID,
     Route: 042

REACTIONS (17)
  - Central nervous system inflammation [Unknown]
  - Nervous system disorder [Unknown]
  - Loss of consciousness [Unknown]
  - Tuberculosis of central nervous system [Unknown]
  - Seizure [Unknown]
  - Renal impairment [Recovered/Resolved]
  - General physical health deterioration [Not Recovered/Not Resolved]
  - Limb discomfort [Unknown]
  - Headache [Unknown]
  - Incorrect route of product administration [Unknown]
  - Paraesthesia [Unknown]
  - Ill-defined disorder [Unknown]
  - Condition aggravated [Unknown]
  - Dysstasia [Unknown]
  - Wrong technique in product usage process [Unknown]
  - Off label use [Unknown]
  - Fatigue [Unknown]

NARRATIVE: CASE EVENT DATE: 20190101
